FAERS Safety Report 7505573-8 (Version None)
Quarter: 2011Q2

REPORT INFORMATION
  Report Type: 
  Country: None (occurrence: None)
  Receive Date: 20110526
  Receipt Date: 20110519
  Transmission Date: 20111010
  Serious: Yes (Other)
  Sender: FDA-Public Use
  Company Number: CO-PFIZER INC-2010155294

PATIENT
  Age: 53 Year
  Sex: Male

DRUGS (13)
  1. RAPAMUNE [Suspect]
     Dosage: 1 MG, 1X/DAY
     Route: 048
     Dates: start: 20101101
  2. CELLCEPT [Concomitant]
     Dosage: UNK
     Dates: end: 20101103
  3. SERTRALINE [Concomitant]
     Dosage: UNK
  4. CALCIUM [Concomitant]
     Dosage: 600 MG, 2X/DAY
  5. GUANIDINE [Concomitant]
     Dosage: UNK
  6. BEDOYECTA [Concomitant]
     Dosage: UNK
  7. OMEPRAZOLE [Concomitant]
     Dosage: 100 MG, 3X/DAY
  8. FUROSEMIDE [Concomitant]
     Dosage: UNK
  9. GABAPENTIN [Concomitant]
     Dosage: 300 MG, UNK
  10. PREDNISOLONE [Concomitant]
     Dosage: 5 MG, UNK
  11. RAPAMUNE [Suspect]
     Indication: RENAL TRANSPLANT
     Dosage: 2 MG, 2X/DAY
     Route: 048
     Dates: start: 20090701
  12. ATORVASTATIN [Concomitant]
  13. PLASIL [Concomitant]

REACTIONS (7)
  - SEBACEOUS CARCINOMA [None]
  - BALANCE DISORDER [None]
  - GOITRE [None]
  - HAND FRACTURE [None]
  - MALIGNANT TUMOUR EXCISION [None]
  - BASAL CELL CARCINOMA [None]
  - TOOTH DISORDER [None]
